FAERS Safety Report 15211217 (Version 1)
Quarter: 2018Q3

REPORT INFORMATION
  Report Type: Spontaneous
  Country: US (occurrence: US)
  Receive Date: 20180630
  Receipt Date: 20180630
  Transmission Date: 20181010
  Serious: Yes (Other)
  Sender: FDA-Public Use
  Company Number: None

PATIENT
  Age: 55 Year
  Sex: Female
  Weight: 99 kg

DRUGS (1)
  1. FLUTICASONE PROPIONATE. [Suspect]
     Active Substance: FLUTICASONE PROPIONATE
     Indication: NASAL CONGESTION
     Dosage: ?          QUANTITY:2 SPRAY(S);OTHER ROUTE:IN NOSE?
     Dates: start: 20180520, end: 20180620

REACTIONS (3)
  - Rhinalgia [None]
  - Nasal discomfort [None]
  - Infection [None]

NARRATIVE: CASE EVENT DATE: 20180620
